FAERS Safety Report 4515266-7 (Version None)
Quarter: 2004Q4

REPORT INFORMATION
  Report Type: 
  Country: None (occurrence: None)
  Receive Date: 20041126
  Receipt Date: 20041117
  Transmission Date: 20050328
  Serious: No
  Sender: FDA-Public Use
  Company Number: DE-2004-033045

PATIENT
  Age: 20 Year
  Sex: Male
  Weight: 62 kg

DRUGS (1)
  1. MAGNEVIST [Suspect]
     Indication: NUCLEAR MAGNETIC RESONANCE IMAGING
     Dosage: 12 ML, 1 DOSE, INTRAVENOUS
     Route: 042
     Dates: start: 20040930

REACTIONS (7)
  - ABDOMINAL PAIN UPPER [None]
  - CARDIOVASCULAR DISORDER [None]
  - DYSPNOEA [None]
  - HYPERVENTILATION [None]
  - NAUSEA [None]
  - NERVOUSNESS [None]
  - THROAT IRRITATION [None]
